FAERS Safety Report 6688179-2 (Version None)
Quarter: 2010Q2

REPORT INFORMATION
  Report Type: 
  Country: None (occurrence: None)
  Receive Date: 20100420
  Receipt Date: 20100415
  Transmission Date: 20101027
  Serious: Yes (Other)
  Sender: FDA-Public Use
  Company Number: JP-ASTRAZENECA-2010SE16154

PATIENT
  Age: 66 Year
  Sex: Male

DRUGS (4)
  1. OMEPRAL [Suspect]
     Indication: REFLUX OESOPHAGITIS
     Route: 048
  2. OMEPRAL [Suspect]
     Route: 048
  3. CRESTOR [Concomitant]
     Dosage: DOSE UNKNOWN
     Route: 048
  4. FAMOTIDINE [Concomitant]
     Indication: REFLUX OESOPHAGITIS
     Dosage: DOSE UNKNOWN
     Route: 065

REACTIONS (1)
  - BLOOD TRIGLYCERIDES INCREASED [None]
